FAERS Safety Report 6678639-2 (Version None)
Quarter: 2010Q2

REPORT INFORMATION
  Report Type: 
  Country: None (occurrence: None)
  Receive Date: 20100413
  Receipt Date: 20100331
  Transmission Date: 20101027
  Serious: Yes (Other)
  Sender: FDA-Public Use
  Company Number: US-PFIZER INC-2010041803

PATIENT
  Sex: Female

DRUGS (1)
  1. ZOLOFT [Suspect]
     Dosage: 20 MG/ML, UNK
     Route: 048

REACTIONS (2)
  - LABORATORY TEST ABNORMAL [None]
  - TOXOPLASMOSIS [None]
